FAERS Safety Report 6336755-9 (Version None)
Quarter: 2009Q3

REPORT INFORMATION
  Report Type: 
  Country: None (occurrence: None)
  Receive Date: 20090901
  Receipt Date: 20090819
  Transmission Date: 20100115
  Serious: Yes (Other)
  Sender: FDA-Public Use
  Company Number: JP-PFIZER INC-2009259515

PATIENT
  Age: 36 Year

DRUGS (9)
  1. ALPRAZOLAM [Suspect]
     Dosage: UNK
     Route: 048
  2. PAROXETINE [Suspect]
     Dosage: UNK
     Route: 048
  3. SULPIRIDE [Suspect]
     Dosage: UNK
     Route: 048
  4. TACROLIMUS [Concomitant]
     Dosage: UNK
  5. PREDNISOLONE [Concomitant]
     Dosage: UNK
  6. DROXIDOPA [Concomitant]
     Dosage: UNK
  7. BUPRENORPHINE [Concomitant]
     Dosage: 0.2 MG, AS NEEDED
  8. FLUVOXAMINE [Concomitant]
     Dosage: UNK
  9. CLOMIPRAMINE HCL [Concomitant]

REACTIONS (1)
  - LIVER DISORDER [None]
